FAERS Safety Report 8261935 (Version 2)
Quarter: 2020Q3

REPORT INFORMATION
  Report Type: Report from Study
  Country: US (occurrence: US)
  Receive Date: 20111123
  Receipt Date: 20120223
  Transmission Date: 20201104
  Serious: Yes (Hospitalization)
  Sender: FDA-Public Use
  Company Number: US-JNJFOC-20100705281

PATIENT
  Age: 22 Year
  Sex: Male
  Weight: 65 kg

DRUGS (5)
  1. GOLIMUMAB [Suspect]
     Active Substance: GOLIMUMAB
     Route: 058
     Dates: start: 20100621
  2. GOLIMUMAB [Suspect]
     Active Substance: GOLIMUMAB
     Route: 058
     Dates: start: 20100310
  3. GOLIMUMAB [Suspect]
     Active Substance: GOLIMUMAB
     Indication: COLITIS ULCERATIVE
     Route: 058
     Dates: start: 20100521
  4. GOLIMUMAB [Suspect]
     Active Substance: GOLIMUMAB
     Route: 058
     Dates: start: 20100723
  5. GOLIMUMAB [Suspect]
     Active Substance: GOLIMUMAB
     Route: 058
     Dates: start: 20100423

REACTIONS (1)
  - Appendicitis [Recovered/Resolved]

NARRATIVE: CASE EVENT DATE: 20100712
